FAERS Safety Report 8324436-1 (Version None)
Quarter: 2012Q2

REPORT INFORMATION
  Report Type: 
  Country: None (occurrence: None)
  Receive Date: 20120430
  Receipt Date: 20120430
  Transmission Date: 20120825
  Serious: No
  Sender: FDA-Public Use
  Company Number: None

PATIENT
  Sex: Male
  Weight: 94.6 kg

DRUGS (1)
  1. ERBITUX [Suspect]
     Dosage: 512 MG

REACTIONS (2)
  - MUCOSAL INFLAMMATION [None]
  - TOXICITY TO VARIOUS AGENTS [None]
